FAERS Safety Report 24572682 (Version 1)
Quarter: 2024Q4

REPORT INFORMATION
  Report Type: Spontaneous
  Country: US (occurrence: US)
  Receive Date: 20241101
  Receipt Date: 20241101
  Transmission Date: 20250115
  Serious: Yes (Hospitalization, Other)
  Sender: CSL BEHRING
  Company Number: US-BEH-2024183205

PATIENT
  Age: 53 Year
  Sex: Female

DRUGS (1)
  1. PRIVIGEN [Suspect]
     Active Substance: HUMAN IMMUNOGLOBULIN G
     Indication: Osteomyelitis acute
     Dosage: 35 G, BIW
     Route: 042
     Dates: start: 20230606

REACTIONS (1)
  - Confusional state [Unknown]
